FAERS Safety Report 5842909-8 (Version None)
Quarter: 2008Q3

REPORT INFORMATION
  Report Type: 
  Country: None (occurrence: None)
  Receive Date: 20080813
  Receipt Date: 20080811
  Transmission Date: 20090109
  Serious: Yes (Hospitalization)
  Sender: FDA-Public Use
  Company Number: US-BRISTOL-MYERS SQUIBB COMPANY-14234850

PATIENT
  Age: 72 Year
  Sex: Male
  Weight: 68 kg

DRUGS (6)
  1. ERBITUX [Suspect]
     Indication: TONSIL CANCER
     Dosage: RECEIVED IN NOV + DEC 2007
     Dates: start: 20071101
  2. RADIATION THERAPY [Suspect]
     Indication: TONSIL CANCER
     Dosage: INTERRUPTED AND STARTED AFTER JAN08
     Dates: start: 20061001
  3. COREG [Concomitant]
  4. LASIX [Concomitant]
  5. COUMADIN [Concomitant]
  6. ALLOPURINOL [Concomitant]

REACTIONS (4)
  - ANOREXIA [None]
  - ELECTROLYTE IMBALANCE [None]
  - RASH [None]
  - WEIGHT DECREASED [None]
